FAERS Safety Report 6740620-2 (Version None)
Quarter: 2010Q2

REPORT INFORMATION
  Report Type: 
  Country: None (occurrence: None)
  Receive Date: 20100525
  Receipt Date: 20100517
  Transmission Date: 20101027
  Serious: Yes (Other)
  Sender: FDA-Public Use
  Company Number: CA-ROCHE-704686

PATIENT
  Age: 71 Year

DRUGS (1)
  1. BEVACIZUMAB [Suspect]
     Dosage: 2 INJECTIONS IN TOTAL
     Route: 031
     Dates: start: 20071011

REACTIONS (3)
  - EYE INFLAMMATION [None]
  - HYPOPYON [None]
  - VITRITIS [None]
